FAERS Safety Report 10923370 (Version 2)
Quarter: 2015Q2

REPORT INFORMATION
  Report Type: Report from Study
  Country: IN (occurrence: IN)
  Receive Date: 20150318
  Receipt Date: 20150406
  Transmission Date: 20150821
  Serious: Yes (Death)
  Sender: FDA-Public Use
  Company Number: IN-BRISTOL-MYERS SQUIBB COMPANY-BMS-2015-014467

PATIENT
  Age: 62 Year
  Sex: Female

DRUGS (1)
  1. CETUXIMAB [Suspect]
     Active Substance: CETUXIMAB
     Indication: SQUAMOUS CELL CARCINOMA OF HEAD AND NECK
     Dosage: 700 MG, UNK
     Route: 042
     Dates: start: 20140704, end: 20140721

REACTIONS (2)
  - Malignant neoplasm progression [Fatal]
  - Haemorrhage [Fatal]

NARRATIVE: CASE EVENT DATE: 20140721
